FAERS Safety Report 5474499-6 (Version None)
Quarter: 2007Q3

REPORT INFORMATION
  Report Type: 
  Country: None (occurrence: None)
  Receive Date: 20070928
  Receipt Date: 20070928
  Transmission Date: 20080115
  Serious: Yes (Hospitalization)
  Sender: FDA-Public Use
  Company Number: None

PATIENT
  Sex: Female
  Weight: 75 kg

DRUGS (4)
  1. FLUOROURACIL [Suspect]
     Dosage: 2642 MG
     Dates: end: 20070918
  2. BEVACIZUMAB (RHUMAB VEGF) [Suspect]
     Dosage: 340 MG
     Dates: end: 20070918
  3. CAMPTOSAR [Suspect]
     Dosage: 166 MG
     Dates: end: 20070918
  4. LEUCOVORIN CALCIUM [Suspect]
     Dosage: 680 MG
     Dates: end: 20070918

REACTIONS (3)
  - DIVERTICULAR PERFORATION [None]
  - DIVERTICULITIS [None]
  - DYSURIA [None]
